FAERS Safety Report 7623282-1 (Version None)
Quarter: 2011Q3

REPORT INFORMATION
  Report Type: 
  Country: None (occurrence: None)
  Receive Date: 20110720
  Receipt Date: 20110714
  Transmission Date: 20111222
  Serious: Yes (Hospitalization, Other)
  Sender: FDA-Public Use
  Company Number: US-ROCHE-749949

PATIENT
  Sex: Female

DRUGS (8)
  1. RIBASPHERE [Suspect]
     Route: 065
     Dates: start: 20101126
  2. RIBASPHERE [Suspect]
     Dosage: DOSE REDUCED
     Route: 065
     Dates: start: 20110401
  3. PEGINTERFERON ALFA-2A [Suspect]
     Indication: HEPATITIS C
     Route: 065
     Dates: start: 20100830
  4. PEGINTERFERON ALFA-2A [Suspect]
     Route: 065
     Dates: start: 20110404
  5. RIBASPHERE [Suspect]
     Indication: HEPATITIS C
     Route: 065
     Dates: start: 20100830
  6. RIBASPHERE [Suspect]
     Route: 065
     Dates: start: 20110101
  7. PEGINTERFERON ALFA-2A [Suspect]
     Route: 065
     Dates: start: 20110101
  8. PROCRIT [Suspect]
     Route: 065
     Dates: start: 20101126, end: 20101201

REACTIONS (10)
  - PAIN IN EXTREMITY [None]
  - WHITE BLOOD CELL COUNT DECREASED [None]
  - MUSCLE SPASMS [None]
  - DEEP VEIN THROMBOSIS [None]
  - BLOOD POTASSIUM DECREASED [None]
  - ALOPECIA [None]
  - ANAEMIA [None]
  - HAEMOGLOBIN DECREASED [None]
  - PLATELET COUNT DECREASED [None]
  - VASODILATATION [None]
